FAERS Safety Report 10227592 (Version 2)
Quarter: 2014Q2

REPORT INFORMATION
  Report Type: Report from Study
  Country: CA (occurrence: CA)
  Receive Date: 20140610
  Receipt Date: 20140623
  Transmission Date: 20141212
  Serious: Yes (Life-Threatening, Other)
  Sender: FDA-Public Use
  Company Number: PHHY2014CA070815

PATIENT
  Age: 74 Year
  Sex: Female

DRUGS (4)
  1. CLOZARIL [Suspect]
     Indication: HALLUCINATION
     Dosage: 62.5 MG, (25 MG AT 9 AM AND 35.5 MG AT NIGHT)
     Route: 048
     Dates: start: 20131217
  2. CLOZARIL [Suspect]
     Indication: PARKINSON^S DISEASE
  3. ATIVAN [Concomitant]
     Dosage: UNK UKN, UNK
  4. REMERON [Concomitant]
     Dosage: UNK UKN, UNK

REACTIONS (1)
  - Loss of consciousness [Recovered/Resolved]
